FAERS Safety Report 6098725-8 (Version None)
Quarter: 2009Q1

REPORT INFORMATION
  Report Type: 
  Country: None (occurrence: None)
  Receive Date: 20090302
  Receipt Date: 20090218
  Transmission Date: 20090719
  Serious: Yes (Hospitalization)
  Sender: FDA-Public Use
  Company Number: DE-ELI_LILLY_AND_COMPANY-DE200812004852

PATIENT
  Age: 42 Year
  Sex: Male
  Weight: 95 kg

DRUGS (5)
  1. BYETTA [Suspect]
     Indication: TYPE 2 DIABETES MELLITUS
     Dosage: 5 UG, 2/D
     Route: 058
     Dates: start: 20081101
  2. BYETTA [Suspect]
     Dosage: 10 UG, 2/D
     Route: 058
  3. HUMALOG [Concomitant]
  4. NOVABOL [Concomitant]
     Dosage: 2.5 MG, UNK
  5. NOVABOL [Concomitant]
     Dosage: 5 MG, UNK

REACTIONS (8)
  - BLOOD GLUCOSE INCREASED [None]
  - BLOOD PRESSURE INCREASED [None]
  - CARDIAC DISORDER [None]
  - DEPRESSION [None]
  - FEELING OF DESPAIR [None]
  - GAIT DISTURBANCE [None]
  - PRESYNCOPE [None]
  - WEIGHT DECREASED [None]
